FAERS Safety Report 13656399 (Version 1)
Quarter: 2017Q2

REPORT INFORMATION
  Report Type: Spontaneous
  Country: US (occurrence: US)
  Receive Date: 20170615
  Receipt Date: 20170615
  Transmission Date: 20170830
  Serious: Yes (Other)
  Sender: FDA-Public Use
  Company Number: US-GLAXOSMITHKLINE-US2017089557

PATIENT
  Age: 54 Year
  Sex: Female

DRUGS (1)
  1. SENSODYNE [Suspect]
     Active Substance: POTASSIUM NITRATE\SODIUM FLUORIDE
     Indication: SENSITIVITY OF TEETH
     Dosage: UNK
     Route: 048
     Dates: end: 20170526

REACTIONS (6)
  - Dysgeusia [Not Recovered/Not Resolved]
  - Malaise [Recovered/Resolved]
  - Glossodynia [Recovering/Resolving]
  - Choking [Recovered/Resolved]
  - Tongue discomfort [Not Recovered/Not Resolved]
  - Vomiting [Recovered/Resolved]
